FAERS Safety Report 7127316-2 (Version None)
Quarter: 2010Q4

REPORT INFORMATION
  Report Type: 
  Country: None (occurrence: None)
  Receive Date: 20101129
  Receipt Date: 20100511
  Transmission Date: 20110411
  Serious: No
  Sender: FDA-Public Use
  Company Number: US-PFIZER INC-2010060029

PATIENT
  Sex: Male
  Weight: 163 kg

DRUGS (25)
  1. VIAGRA [Suspect]
     Indication: ERECTILE DYSFUNCTION
     Dosage: 25 MG,
     Route: 048
     Dates: start: 20100201
  2. CELEBREX [Concomitant]
     Dosage: 200 MG, 2X/DAY
  3. LANTUS [Concomitant]
     Indication: DIABETES MELLITUS
     Dosage: 60 (UNKNOWN UNITS), 1X/DAY
  4. INSULIN [Concomitant]
     Indication: DIABETES MELLITUS
     Dosage: UNK, AS NEEDED
  5. BYETTA [Concomitant]
     Indication: DIABETES MELLITUS
     Dosage: 5 UG, UNK
  6. SPIRIVA [Concomitant]
     Dosage: UNK, ONCE A DAY
  7. ADVAIR DISKUS 100/50 [Concomitant]
     Dosage: 150 (UNKNOWN UNITS), 2X/DAY
  8. TAMSULOSIN [Concomitant]
     Dosage: 0.4 MG,
  9. BENADRYL [Concomitant]
     Dosage: 25 MG,
  10. FLONASE [Concomitant]
     Dosage: 0.05 %, AS NEEDED
     Route: 045
  11. ALBUTEROL [Concomitant]
     Dosage: 2.5 MG, AS NEEDED
  12. SITAGLIPTIN [Concomitant]
     Dosage: 50 MG, 2X/DAY
  13. KLONOPIN [Concomitant]
     Dosage: 1 MG,
  14. DARVOCET [Concomitant]
     Dosage: 100 MG, AS NEEDED
  15. LASIX [Concomitant]
     Dosage: 20 MG, EVERY TWO DAYS
  16. AMBIEN [Concomitant]
     Dosage: 6.25 MG, AS NEEDED
  17. MECLIZINE [Concomitant]
     Indication: DIZZINESS
     Dosage: 25 MG, AS NEEDED
  18. ZYRTEC [Concomitant]
     Indication: SINUS DISORDER
     Dosage: 10 MG, UNK
  19. LEVITRA [Concomitant]
     Dosage: 20 MG, AS NEEDED
  20. PRILOSEC [Concomitant]
     Dosage: 20 MG, DAILY
  21. TOPROL-XL [Concomitant]
     Dosage: 50 MG,
  22. ZESTRIL [Concomitant]
     Dosage: 5 MG, DAILY
  23. ZOCOR [Concomitant]
     Dosage: 20 MG,
  24. ACTOS [Concomitant]
     Dosage: 45 MG, DAILY
  25. ACETYLSALICYLIC ACID [Concomitant]
     Dosage: 81 MG, UNK

REACTIONS (1)
  - DRUG INEFFECTIVE [None]
